FAERS Safety Report 4823192-9 (Version None)
Quarter: 2005Q4

REPORT INFORMATION
  Report Type: 
  Country: None (occurrence: None)
  Receive Date: 20051027
  Receipt Date: 20050504
  Transmission Date: 20060501
  Serious: Yes (Other)
  Sender: FDA-Public Use
  Company Number: HQWYE555505MAY05

PATIENT
  Age: 63 Year
  Sex: Female

DRUGS (3)
  1. PREMARIN [Suspect]
     Dosage: ORAL
     Route: 048
     Dates: start: 19910101, end: 20020318
  2. MEDROXYPROGESTERONE ACETATE [Suspect]
     Dates: start: 19910101, end: 20010920
  3. PROVERA [Suspect]
     Dosage: ORAL
     Route: 048
     Dates: start: 19910101, end: 20010730

REACTIONS (1)
  - BREAST CANCER [None]
